FAERS Safety Report 7293253-6 (Version None)
Quarter: 2011Q1

REPORT INFORMATION
  Report Type: 
  Country: None (occurrence: None)
  Receive Date: 20110215
  Receipt Date: 20110208
  Transmission Date: 20110831
  Serious: Yes (Death)
  Sender: FDA-Public Use
  Company Number: NO-ROCHE-753719

PATIENT
  Sex: Female

DRUGS (5)
  1. IBUPROFEN [Suspect]
     Dosage: FREQUENCY: 3-4 X  DAY
     Route: 048
     Dates: end: 20100901
  2. VOLTAREN [Suspect]
     Route: 048
     Dates: start: 20100827
  3. ROACTEMRA [Suspect]
     Dosage: FREQUENCY: 1 DOSE DAILY.
     Route: 041
     Dates: start: 20100826, end: 20100826
  4. LEDERSPAN [Suspect]
     Route: 014
     Dates: start: 20100823
  5. PREDNISOLONE [Concomitant]
     Route: 048

REACTIONS (4)
  - CEREBRAL INFARCTION [None]
  - DEATH [None]
  - MYOCARDIAL INFARCTION [None]
  - CEREBROVASCULAR ACCIDENT [None]
